FAERS Safety Report 13573553 (Version 1)
Quarter: 2017Q2

REPORT INFORMATION
  Report Type: Spontaneous
  Country: BR (occurrence: BR)
  Receive Date: 20170523
  Receipt Date: 20170523
  Transmission Date: 20170830
  Serious: Yes (Other)
  Sender: FDA-Public Use
  Company Number: BR-ALEXION-A201705429

PATIENT
  Age: 16 Year
  Sex: Female

DRUGS (2)
  1. SOLIRIS [Suspect]
     Active Substance: ECULIZUMAB
     Indication: HAEMOLYTIC URAEMIC SYNDROME
     Dosage: 900 MG, FOR 4 WEEKS
     Route: 042
     Dates: start: 20150525, end: 20150611
  2. SOLIRIS [Suspect]
     Active Substance: ECULIZUMAB
     Dosage: 1200 MG, Q2W
     Route: 042
     Dates: start: 20150618

REACTIONS (7)
  - Cough [Unknown]
  - Oropharyngeal pain [Unknown]
  - Influenza [Unknown]
  - Feeding disorder [Unknown]
  - Pyrexia [Unknown]
  - Pneumonia [Unknown]
  - Dizziness [Unknown]

NARRATIVE: CASE EVENT DATE: 20170504
